FAERS Safety Report 23375926 (Version 1)
Quarter: 2024Q1

REPORT INFORMATION
  Report Type: Spontaneous
  Country: US (occurrence: US)
  Receive Date: 20240108
  Receipt Date: 20240108
  Transmission Date: 20240409
  Serious: No
  Sender: FDA-Public Use
  Company Number: ENDG23-05984

PATIENT

DRUGS (2)
  1. COLCHICINE [Suspect]
     Active Substance: COLCHICINE
     Indication: Gout
     Dosage: UNK UNKNOWN, UNKNOWN
     Route: 065
  2. PAXLOVID [Concomitant]
     Active Substance: NIRMATRELVIR\RITONAVIR
     Indication: COVID-19
     Dosage: UNK UNKNOWN, UNKNOWN (MORNING AND EVENING DOSES)
     Route: 065

REACTIONS (3)
  - Haemorrhage [Unknown]
  - Haemorrhoids [Unknown]
  - Diarrhoea [Unknown]
